FAERS Safety Report 23562268 (Version 1)
Quarter: 2024Q1

REPORT INFORMATION
  Report Type: Spontaneous
  Country: US (occurrence: US)
  Receive Date: 20240226
  Receipt Date: 20240226
  Transmission Date: 20240410
  Serious: Yes (Hospitalization, Other)
  Sender: FDA-Public Use
  Company Number: US-SA-SAC20240221000773

PATIENT
  Age: 51 Year
  Sex: Female
  Weight: 67.1 kg

DRUGS (1)
  1. DUPIXENT [Suspect]
     Active Substance: DUPILUMAB
     Indication: Ill-defined disorder
     Dosage: 300 MG, QOW
     Route: 058
     Dates: start: 20230814

REACTIONS (8)
  - Pneumonia [Unknown]
  - Pneumothorax [Unknown]
  - Pulmonary oedema [Unknown]
  - Aphonia [Recovered/Resolved]
  - Laryngitis fungal [Recovering/Resolving]
  - Injection site pain [Unknown]
  - Oral herpes [Unknown]
  - Condition aggravated [Unknown]

NARRATIVE: CASE EVENT DATE: 20230101
